FAERS Safety Report 11239711 (Version 1)
Quarter: 2015Q3

REPORT INFORMATION
  Report Type: Spontaneous
  Country: US (occurrence: None)
  Receive Date: 20150701
  Receipt Date: 20150701
  Transmission Date: 20151125
  Serious: No
  Sender: FDA-Public Use
  Company Number: None

PATIENT

DRUGS (3)
  1. NORTRIPTYLINE [Suspect]
     Active Substance: NORTRIPTYLINE
  2. ROPINIROLE. [Suspect]
     Active Substance: ROPINIROLE
  3. LOXAPINE. [Suspect]
     Active Substance: LOXAPINE

REACTIONS (2)
  - Product barcode issue [None]
  - Circumstance or information capable of leading to medication error [None]
